FAERS Safety Report 6100860-2 (Version None)
Quarter: 2009Q1

REPORT INFORMATION
  Report Type: 
  Country: None (occurrence: None)
  Receive Date: 20090223
  Receipt Date: 20090213
  Transmission Date: 20090719
  Serious: Yes (Other)
  Sender: FDA-Public Use
  Company Number: CHPA2009US04382

PATIENT
  Age: 18 Year
  Sex: Female

DRUGS (1)
  1. THERAFLU DAYTIME SEVERE COLD NO PSE CAPLET (NCH)(PARACETAMOL, DEXTROME [Suspect]
     Indication: NASOPHARYNGITIS
     Dosage: 2 DF, BID, ORAL
     Route: 048
     Dates: start: 20080101, end: 20080101

REACTIONS (4)
  - CONVULSION [None]
  - MOVEMENT DISORDER [None]
  - MUSCLE DISORDER [None]
  - SHOCK [None]
